FAERS Safety Report 19180920 (Version 2)
Quarter: 2021Q2

REPORT INFORMATION
  Report Type: Spontaneous
  Country: RU (occurrence: RU)
  Receive Date: 20210426
  Receipt Date: 20210510
  Transmission Date: 20210717
  Serious: No
  Sender: FDA-Public Use
  Company Number: RU-BAYER-2021-116735

PATIENT
  Age: 67 Year

DRUGS (1)
  1. STIVARGA [Suspect]
     Active Substance: REGORAFENIB
     Indication: COLORECTAL CANCER METASTATIC
     Dosage: 160 MG, QD FOR 3 WEEKS, A WEEK^S INTERVAL
     Dates: start: 20191105

REACTIONS (1)
  - Palmar-plantar erythrodysaesthesia syndrome [None]
